FAERS Safety Report 5027967-5 (Version None)
Quarter: 2006Q2

REPORT INFORMATION
  Report Type: 
  Country: None (occurrence: None)
  Receive Date: 20060609
  Receipt Date: 20060530
  Transmission Date: 20061013
  Serious: Yes (Hospitalization)
  Sender: FDA-Public Use
  Company Number: B0425609A

PATIENT
  Age: 79 Year
  Sex: Female

DRUGS (7)
  1. PAXIL [Suspect]
     Indication: DEPRESSION
     Dosage: 10 MG PER DAY
  2. RISPERIDONE [Suspect]
     Dosage: 25 MG TWICE PEAR DAY ORAL
     Route: 048
  3. AMLODIPINE [Concomitant]
  4. GALANTAMINE HYDROBROMIDE [Concomitant]
  5. DOCUSATE SODIUM [Concomitant]
  6. CELECOXIB [Concomitant]
  7. CALCIUM CITRATE [Concomitant]

REACTIONS (7)
  - ANAEMIA [None]
  - HYPOTHERMIA [None]
  - LETHARGY [None]
  - MENTAL STATUS CHANGES [None]
  - MUCOSAL DRYNESS [None]
  - ORAL INTAKE REDUCED [None]
  - THROMBOCYTOPENIA [None]
